FAERS Safety Report 4370959-X (Version None)
Quarter: 2004Q2

REPORT INFORMATION
  Report Type: 
  Country: None (occurrence: None)
  Receive Date: 20040601
  Receipt Date: 20031110
  Transmission Date: 20050107
  Serious: Yes (Life-Threatening, Hospitalization, Disabling)
  Sender: FDA-Public Use
  Company Number: M2004.0521

PATIENT
  Age: 38 Year
  Sex: Female
  Weight: 60 kg

DRUGS (2)
  1. DICLOFENAC 25MG TABLET, UNKNOWN MANUFACTURER [Suspect]
     Indication: PAIN
     Dosage: 50 MG QD
     Dates: start: 20030925, end: 20030928
  2. INSULIN [Concomitant]

REACTIONS (1)
  - NECROTISING FASCIITIS [None]
